FAERS Safety Report 25459308 (Version 3)
Quarter: 2025Q3

REPORT INFORMATION
  Report Type: Spontaneous
  Country: JP (occurrence: JP)
  Receive Date: 20250620
  Receipt Date: 20250711
  Transmission Date: 20251020
  Serious: Yes (Other)
  Sender: AMGEN
  Company Number: JP-AMGEN-JPNSP2025116992

PATIENT
  Age: 74 Year
  Sex: Female

DRUGS (7)
  1. OTEZLA [Suspect]
     Active Substance: APREMILAST
     Indication: Psoriasis
     Dosage: 30 MILLIGRAM, BID AFTER THE GRADUAL DOSE INCREASE WITH PTEZLA TWO-WEEK STARTER PACK
     Route: 048
     Dates: start: 20250408, end: 20250423
  2. AMLODIPINE [Concomitant]
     Active Substance: AMLODIPINE BESYLATE
     Route: 065
  3. OLMESARTAN [Concomitant]
     Active Substance: OLMESARTAN
     Route: 065
  4. PITAVASTATIN [Concomitant]
     Active Substance: PITAVASTATIN
     Route: 065
  5. BILASTINE [Concomitant]
     Active Substance: BILASTINE
     Route: 065
  6. Depas [Concomitant]
     Route: 065
  7. BELSOMRA [Concomitant]
     Active Substance: SUVOREXANT
     Route: 065

REACTIONS (5)
  - Haematemesis [Unknown]
  - Cholecystitis [Unknown]
  - Diarrhoea [Recovered/Resolved]
  - Vomiting [Recovered/Resolved]
  - Gastrooesophageal reflux disease [Unknown]

NARRATIVE: CASE EVENT DATE: 20250401
